FAERS Safety Report 5315459-5 (Version None)
Quarter: 2007Q2

REPORT INFORMATION
  Report Type: 
  Country: None (occurrence: None)
  Receive Date: 20070503
  Receipt Date: 20070424
  Transmission Date: 20071010
  Serious: Yes (Other)
  Sender: FDA-Public Use
  Company Number: DE-NOVOPROD-257902

PATIENT
  Sex: Female

DRUGS (2)
  1. VAGIFEM [Suspect]
     Indication: OESTROGEN DEFICIENCY
     Dates: start: 20060116, end: 20060824
  2. OEKOLP [Concomitant]
     Dates: start: 19950101, end: 20040101

REACTIONS (1)
  - BREAST CANCER [None]
